FAERS Safety Report 9937425 (Version 1)
Quarter: 2014Q1

REPORT INFORMATION
  Report Type: Report from Study
  Country: US (occurrence: US)
  Receive Date: 20140303
  Receipt Date: 20140303
  Transmission Date: 20141002
  Serious: Yes (Hospitalization, Other)
  Sender: FDA-Public Use
  Company Number: US-ROCHE-1352953

PATIENT
  Sex: Female

DRUGS (3)
  1. XOLAIR [Suspect]
     Indication: ASTHMA
     Route: 058
  2. BENADRYL (UNITED STATES) [Concomitant]
  3. SOLU-MEDROL [Concomitant]

REACTIONS (9)
  - Asthma [Unknown]
  - Oropharyngeal pain [Unknown]
  - Cough [Unknown]
  - Wheezing [Unknown]
  - Throat tightness [Unknown]
  - Lip swelling [Unknown]
  - Dysphonia [Unknown]
  - Throat irritation [Unknown]
  - Chest discomfort [Unknown]
